FAERS Safety Report 8423957-0 (Version None)
Quarter: 2012Q2

REPORT INFORMATION
  Report Type: 
  Country: None (occurrence: None)
  Receive Date: 20120608
  Receipt Date: 20120531
  Transmission Date: 20120825
  Serious: Yes (Other)
  Sender: FDA-Public Use
  Company Number: US-ENDO PHARMACEUTICALS INC.-OPCR20121285

PATIENT
  Sex: Male

DRUGS (5)
  1. OPANA ER [Concomitant]
     Route: 048
     Dates: start: 20101116, end: 20120301
  2. OXYCODONE HCL [Concomitant]
     Indication: BREAKTHROUGH PAIN
     Route: 048
  3. OPANA ER [Suspect]
     Route: 048
     Dates: start: 20120101
  4. OPANA ER [Suspect]
     Indication: BACK PAIN
     Route: 048
     Dates: start: 20120301, end: 20120101
  5. NEXIUM [Concomitant]
     Indication: GASTROOESOPHAGEAL REFLUX DISEASE
     Route: 048

REACTIONS (3)
  - DRUG EFFECT DECREASED [None]
  - INTENTIONAL DRUG MISUSE [None]
  - DYSPEPSIA [None]
